FAERS Safety Report 10788225 (Version 1)
Quarter: 2015Q1

REPORT INFORMATION
  Report Type: Report from Study
  Country: BR (occurrence: BR)
  Receive Date: 20150212
  Receipt Date: 20150212
  Transmission Date: 20150721
  Serious: Yes (Other)
  Sender: FDA-Public Use
  Company Number: BR-SA-2015SA015603

PATIENT
  Age: 67 Year
  Sex: Female
  Weight: 58 kg

DRUGS (8)
  1. CLIKSTAR [Concomitant]
     Active Substance: CLIKSTAR
     Dates: start: 2008
  2. LANTUS [Suspect]
     Active Substance: INSULIN GLARGINE
     Indication: TYPE 2 DIABETES MELLITUS
     Route: 058
     Dates: start: 2008
  3. GLIFAGE [Concomitant]
     Active Substance: METFORMIN HYDROCHLORIDE
     Route: 048
  4. GALVUS [Concomitant]
     Active Substance: VILDAGLIPTIN
     Route: 048
  5. SIMVASTATIN. [Concomitant]
     Active Substance: SIMVASTATIN
     Indication: BLOOD CHOLESTEROL
     Route: 048
  6. ATENOLOL. [Concomitant]
     Active Substance: ATENOLOL
     Indication: HYPERTENSION
     Route: 048
  7. LEVOTHYROXINE SODIUM. [Concomitant]
     Active Substance: LEVOTHYROXINE SODIUM
     Indication: THYROID DISORDER
     Route: 048
  8. CELESTONE [Concomitant]
     Active Substance: BETAMETHASONE
     Indication: BREAST CANCER
     Route: 048

REACTIONS (2)
  - Breast pain [Recovered/Resolved]
  - Breast cancer [Recovered/Resolved]

NARRATIVE: CASE EVENT DATE: 2011
